FAERS Safety Report 22869656 (Version 3)
Quarter: 2024Q1

REPORT INFORMATION
  Report Type: Spontaneous
  Country: US (occurrence: US)
  Receive Date: 20230828
  Receipt Date: 20240101
  Transmission Date: 20240409
  Serious: No
  Sender: FDA-Public Use
  Company Number: US-SA-SAC20230823000090

PATIENT
  Age: 61 Year
  Sex: Male

DRUGS (3)
  1. DUPIXENT [Suspect]
     Active Substance: DUPILUMAB
     Indication: Nasal polyps
     Dosage: 300 MG, QOW
     Route: 058
     Dates: start: 202306
  2. DUPIXENT [Suspect]
     Active Substance: DUPILUMAB
     Indication: Asthma
  3. XYZAL [Concomitant]
     Active Substance: LEVOCETIRIZINE DIHYDROCHLORIDE
     Indication: Seasonal allergy

REACTIONS (11)
  - Lacrimation increased [Recovered/Resolved]
  - Nasal congestion [Recovering/Resolving]
  - Nasal obstruction [Recovering/Resolving]
  - Anosmia [Recovering/Resolving]
  - Rhinorrhoea [Recovering/Resolving]
  - Eye pain [Recovered/Resolved]
  - Arthritis [Unknown]
  - Dental discomfort [Recovered/Resolved]
  - Pruritus [Unknown]
  - Eye pruritus [Recovered/Resolved]
  - Eye inflammation [Recovered/Resolved]

NARRATIVE: CASE EVENT DATE: 20230101
